FAERS Safety Report 7067636-3 (Version None)
Quarter: 2010Q4

REPORT INFORMATION
  Report Type: 
  Country: None (occurrence: None)
  Receive Date: 20101028
  Receipt Date: 20101011
  Transmission Date: 20110411
  Serious: Yes (Death, Life-Threatening, Hospitalization)
  Sender: FDA-Public Use
  Company Number: FR-SANOFI-AVENTIS-2010SA061883

PATIENT
  Age: 40 Year
  Sex: Female

DRUGS (2)
  1. BETAXOLOL HCL [Suspect]
     Indication: INTENTIONAL OVERDOSE
     Route: 065
  2. FLECAINIDE ACETATE [Suspect]
     Indication: INTENTIONAL OVERDOSE
     Route: 065

REACTIONS (7)
  - BRADYCARDIA [None]
  - BRAIN DEATH [None]
  - CARDIAC ARREST [None]
  - CARDIOGENIC SHOCK [None]
  - COMA [None]
  - MULTI-ORGAN FAILURE [None]
  - OVERDOSE [None]
